FAERS Safety Report 22354049 (Version 7)
Quarter: 2024Q2

REPORT INFORMATION
  Report Type: Report from Study
  Country: CA (occurrence: CA)
  Receive Date: 20230523
  Receipt Date: 20240629
  Transmission Date: 20240715
  Serious: Yes (Hospitalization, Other)
  Sender: FDA-Public Use
  Company Number: CA-GLAXOSMITHKLINE-CA2022AMR195990

PATIENT

DRUGS (11)
  1. MEPOLIZUMAB [Suspect]
     Active Substance: MEPOLIZUMAB
     Indication: Asthma
     Dosage: 100 MG, Q4W,EVERY 4 WEEKS
     Route: 058
     Dates: start: 20201119
  2. MEPOLIZUMAB [Suspect]
     Active Substance: MEPOLIZUMAB
     Indication: Asthma
     Dosage: 100 MG, Q4W
     Route: 058
     Dates: start: 20201119
  3. MEPOLIZUMAB [Suspect]
     Active Substance: MEPOLIZUMAB
     Indication: Asthma
     Dosage: 100 MG, Q4W
     Route: 058
     Dates: start: 20201119
  4. MEPOLIZUMAB [Suspect]
     Active Substance: MEPOLIZUMAB
     Indication: Asthma
     Dosage: 100 MG, Q4W
     Route: 058
     Dates: start: 20201119
  5. MEPOLIZUMAB [Suspect]
     Active Substance: MEPOLIZUMAB
     Indication: Asthma
     Dosage: 100 MG, Q4W
     Route: 058
     Dates: start: 20201119
  6. MEPOLIZUMAB [Suspect]
     Active Substance: MEPOLIZUMAB
     Indication: Asthma
     Dosage: 100 MG, Q4W
     Route: 058
     Dates: start: 20201119
  7. COVID-19 VACCINE NOS [Suspect]
     Active Substance: COVID-19 VACCINE
     Indication: Product used for unknown indication
     Dosage: UNK
  8. AMOXICILLIN\CLAVULANATE POTASSIUM [Concomitant]
     Active Substance: AMOXICILLIN\CLAVULANATE POTASSIUM
     Indication: Product used for unknown indication
     Dosage: UNK, BID, 875-125 MG
  9. PREDNISONE [Concomitant]
     Active Substance: PREDNISONE
     Indication: Product used for unknown indication
     Dosage: 5 MG
  10. PNEUMOVAX 23 [Concomitant]
     Active Substance: PNEUMOCOCCAL VACCINE, POLYVALENT 23
     Indication: Product used for unknown indication
     Dosage: UNK
  11. INFLUENZA VIRUS VACCINE [Concomitant]
     Active Substance: INFLUENZA VIRUS VACCINE
     Indication: Product used for unknown indication
     Dosage: UNK

REACTIONS (30)
  - Urinary tract infection [Unknown]
  - Abdominal operation [Not Recovered/Not Resolved]
  - Hospitalisation [Unknown]
  - Muscular weakness [Unknown]
  - Pneumonia [Unknown]
  - Surgery [Unknown]
  - Tooth extraction [Unknown]
  - Pulmonary oedema [Unknown]
  - Asthmatic crisis [Unknown]
  - Colostomy [Recovering/Resolving]
  - Somnolence [Unknown]
  - Dermatitis allergic [Unknown]
  - Rash macular [Unknown]
  - Heart rate increased [Unknown]
  - Anaemia [Unknown]
  - Transfusion [Unknown]
  - Dyspnoea exertional [Unknown]
  - Bronchial secretion retention [Unknown]
  - Productive cough [Unknown]
  - Pain in extremity [Unknown]
  - Myalgia [Unknown]
  - Fatigue [Unknown]
  - Fall [Recovering/Resolving]
  - Balance disorder [Recovering/Resolving]
  - Infection [Recovering/Resolving]
  - Haemorrhage [Recovering/Resolving]
  - Mass [Not Recovered/Not Resolved]
  - Bladder pain [Unknown]
  - Blood iron decreased [Unknown]
  - Back pain [Unknown]

NARRATIVE: CASE EVENT DATE: 20230801
